FAERS Safety Report 25351200 (Version 3)
Quarter: 2025Q4

REPORT INFORMATION
  Report Type: Report from Study
  Country: MY (occurrence: MY)
  Receive Date: 20250523
  Receipt Date: 20251229
  Transmission Date: 20260117
  Serious: Yes (Other)
  Sender: TAKEDA
  Company Number: MY-TAKEDA-2025TUS047360

PATIENT
  Age: 62 Year
  Sex: Male

DRUGS (1)
  1. VEDOLIZUMAB [Suspect]
     Active Substance: VEDOLIZUMAB
     Indication: Crohn^s disease
     Dosage: 300 MILLIGRAM
     Dates: start: 20231006, end: 20250822

REACTIONS (4)
  - Crohn^s disease [Unknown]
  - Haematochezia [Unknown]
  - Diarrhoea [Unknown]
  - Treatment failure [Unknown]
